FAERS Safety Report 8485716 (Version 2)
Quarter: 2012Q4

REPORT INFORMATION
  Report Type: 
  Country: US (occurrence: US)
  Receive Date: 20120330
  Receipt Date: 20121231
  Transmission Date: 20130627
  Serious: Yes (Hospitalization)
  Sender: FDA-Public Use
  Company Number: US-MPIJNJ-2012-02085

PATIENT
  Age: 69 Year
  Sex: Male

DRUGS (3)
  1. VELCADE [Suspect]
     Indication: MULTIPLE MYELOMA
     Dosage: 2 mg, UNK
     Route: 042
     Dates: start: 20110426, end: 20110721
  2. DOXIL                              /00330902/ [Concomitant]
     Indication: MULTIPLE MYELOMA
     Dosage: 10 mg, UNK
     Route: 042
     Dates: start: 20110426, end: 20110721
  3. DEXAMETHASONE [Concomitant]
     Indication: MULTIPLE MYELOMA
     Dosage: 40 mg, UNK
     Route: 048
     Dates: start: 20110426, end: 20110721

REACTIONS (1)
  - Chest pain [Recovered/Resolved]
